FAERS Safety Report 8594192-0 (Version None)
Quarter: 2012Q3

REPORT INFORMATION
  Report Type: 
  Country: None (occurrence: None)
  Receive Date: 20120814
  Receipt Date: 20120806
  Transmission Date: 20120928
  Serious: Yes (Hospitalization)
  Sender: FDA-Public Use
  Company Number: JP-009507513-1207JPN001507

PATIENT

DRUGS (3)
  1. COZAAR [Suspect]
     Route: 048
     Dates: start: 19950101
  2. COZAAR [Suspect]
     Dosage: UNK
     Route: 048
     Dates: start: 19950101
  3. ALLOPURINOL [Suspect]
     Route: 065
     Dates: start: 19950101

REACTIONS (1)
  - DRUG ERUPTION [None]
